FAERS Safety Report 4736453-9 (Version None)
Quarter: 2005Q3

REPORT INFORMATION
  Report Type: 
  Country: None (occurrence: None)
  Receive Date: 20050804
  Receipt Date: 20050718
  Transmission Date: 20060218
  Serious: Yes (Hospitalization)
  Sender: FDA-Public Use
  Company Number: US-JNJFOC-20050604313

PATIENT
  Age: 47 Year
  Sex: Female

DRUGS (10)
  1. TOPAMAX [Suspect]
     Dosage: 50 MG, 2 IN 1 DAY, ORAL
     Route: 048
     Dates: start: 20050501
  2. LEVAQUIN [Suspect]
     Dosage: 500 MG, 1 IN 1 DAY
     Dates: start: 20050601, end: 20050601
  3. NEURONTIN [Concomitant]
  4. NAPROXEN [Concomitant]
  5. ATENOLOL [Concomitant]
  6. LEXAPRO [Concomitant]
  7. LIPITOR [Concomitant]
  8. TRAMADOL HCL [Concomitant]
  9. FLEXERIL [Concomitant]
  10. ASPIRIN [Concomitant]

REACTIONS (23)
  - ABDOMINAL DISCOMFORT [None]
  - ABDOMINAL PAIN UPPER [None]
  - ALANINE AMINOTRANSFERASE INCREASED [None]
  - ASPARTATE AMINOTRANSFERASE INCREASED [None]
  - BLOOD BILIRUBIN INCREASED [None]
  - CHOLECYSTITIS [None]
  - CHOLECYSTITIS CHRONIC [None]
  - CHOLECYSTITIS INFECTIVE [None]
  - COUGH [None]
  - DEHYDRATION [None]
  - DYSTHYMIC DISORDER [None]
  - EXTRAPYRAMIDAL DISORDER [None]
  - FATIGUE [None]
  - HEPATIC FAILURE [None]
  - HEPATITIS A [None]
  - HYPERLIPIDAEMIA [None]
  - HYPOTENSION [None]
  - HYPOVOLAEMIA [None]
  - LIPASE INCREASED [None]
  - MYALGIA [None]
  - MYOSITIS [None]
  - RESPIRATORY DISORDER [None]
  - WHEEZING [None]
